FAERS Safety Report 10508907 (Version 2)
Quarter: 2014Q4

REPORT INFORMATION
  Report Type: Spontaneous
  Country: DE (occurrence: DE)
  Receive Date: 20141009
  Receipt Date: 20141009
  Transmission Date: 20150528
  Serious: Yes (Death, Life-Threatening, Hospitalization, Other)
  Sender: FDA-Public Use
  Company Number: DE-PFIZER INC-2014274413

PATIENT
  Age: 78 Year
  Sex: Male

DRUGS (1)
  1. RAPAMUNE [Suspect]
     Active Substance: SIROLIMUS
     Indication: RENAL TRANSPLANT
     Dosage: 1 MG, DAILY
     Route: 048

REACTIONS (4)
  - Cytopenia [Fatal]
  - Pneumonitis [Unknown]
  - Immunosuppressant drug level increased [Unknown]
  - Sepsis [Fatal]

NARRATIVE: CASE EVENT DATE: 20141002
